FAERS Safety Report 10678184 (Version 2)
Quarter: 2015Q1

REPORT INFORMATION
  Report Type: Report from Study
  Country: CA (occurrence: CA)
  Receive Date: 20141229
  Receipt Date: 20150117
  Transmission Date: 20150720
  Serious: No
  Sender: FDA-Public Use
  Company Number: CA-AMGEN-CANSL2014099208

PATIENT
  Age: 75 Year
  Sex: Female

DRUGS (1)
  1. PROLIA [Suspect]
     Active Substance: DENOSUMAB
     Indication: OSTEOPOROSIS POSTMENOPAUSAL
     Dosage: 60 MG, Q6MO
     Route: 058
     Dates: start: 20140325

REACTIONS (5)
  - Skin swelling [Unknown]
  - Skin burning sensation [Unknown]
  - Rhinorrhoea [Unknown]
  - Erythema [Unknown]
  - Feeling hot [Unknown]
